FAERS Safety Report 19758153 (Version 2)
Quarter: 2021Q3

REPORT INFORMATION
  Report Type: Spontaneous
  Country: BR (occurrence: BR)
  Receive Date: 20210827
  Receipt Date: 20210914
  Transmission Date: 20211014
  Serious: Yes (Other)
  Sender: FDA-Public Use
  Company Number: BR-ORGANON-O2108BRA002125

PATIENT
  Age: 73 Year
  Sex: Female
  Weight: 80 kg

DRUGS (9)
  1. NASONEX [Suspect]
     Active Substance: MOMETASONE FUROATE
     Indication: ASTHMA
     Dosage: 120ATM (AT NIGHT AT BEDTIME), HS
     Dates: start: 20210819
  2. SELOZOK [Concomitant]
     Active Substance: METOPROLOL SUCCINATE
     Indication: CARDIAC FIBRILLATION
     Dosage: 1 TABLET ? 25 MG, DAILY, FOR MORE THAN 5 YEARS
     Route: 048
  3. AMLODIPINE AND VALSARTAN [Concomitant]
     Active Substance: AMLODIPINE\VALSARTAN
     Dosage: AMLODIPINE 5MG + VALSARTAN, 1 TABLET, DAILY, FOR MORE THAN 2 YEARS
     Route: 048
  4. CLOPIDOGREL [Concomitant]
     Active Substance: CLOPIDOGREL BISULFATE
     Indication: MYOCARDIAL INFARCTION
     Dosage: 1 TABLET, 75 MG, DAILY, FOR ABOUT 1 YEAR
     Route: 048
  5. NEOSORO [Concomitant]
     Active Substance: NAPHAZOLINE HYDROCHLORIDE
     Dosage: INDICATION: TO UNCLOG THE NOSE
  6. FLUOXETINE HYDROCHLORIDE. [Concomitant]
     Active Substance: FLUOXETINE HYDROCHLORIDE
     Indication: DEPRESSION
     Dosage: 1 TABLET ? 20MG, DAILY, FOR MORE THAN 2 YEARS
     Route: 048
  7. NASONEX [Suspect]
     Active Substance: MOMETASONE FUROATE
     Indication: ASTHMA
     Dosage: UNK
     Dates: start: 2019
  8. VALSARTAN. [Concomitant]
     Active Substance: VALSARTAN
     Indication: CORONARY ARTERY OCCLUSION
     Dosage: 1 TABLET 160 MG, DAILY, FOR MORE THAN 4 YEARS
     Route: 048
  9. PANTOPRAZOLE [Concomitant]
     Active Substance: PANTOPRAZOLE
     Dosage: UNK

REACTIONS (7)
  - Pruritus [Recovered/Resolved]
  - Product taste abnormal [Unknown]
  - Product use in unapproved indication [Unknown]
  - Product odour abnormal [Unknown]
  - Epilepsy [Unknown]
  - Stress [Not Recovered/Not Resolved]
  - Poor quality device used [Unknown]

NARRATIVE: CASE EVENT DATE: 2019
